FAERS Safety Report 5139126-6 (Version None)
Quarter: 2006Q4

REPORT INFORMATION
  Report Type: 
  Country: None (occurrence: None)
  Receive Date: 20061030
  Receipt Date: 20060626
  Transmission Date: 20070319
  Serious: No
  Sender: FDA-Public Use
  Company Number: US-GLAXOSMITHKLINE-A0610327A

PATIENT
  Age: 74 Year
  Sex: Male

DRUGS (12)
  1. ADVAIR HFA [Suspect]
     Indication: CHRONIC OBSTRUCTIVE PULMONARY DISEASE
     Dosage: 1PUFF TWICE PER DAY
     Route: 055
  2. PLAVIX [Concomitant]
  3. ASPIRIN [Concomitant]
  4. ANTACID TAB [Concomitant]
  5. DETROL [Concomitant]
  6. PAXIL [Concomitant]
  7. TOPROL-XL [Concomitant]
  8. IRON [Concomitant]
  9. COLACE [Concomitant]
  10. ZOCOR [Concomitant]
  11. NIASPAN [Concomitant]
  12. OXYGEN [Concomitant]

REACTIONS (2)
  - DYSPNOEA [None]
  - PHARMACEUTICAL PRODUCT COMPLAINT [None]
